FAERS Safety Report 5167199-3 (Version None)
Quarter: 2006Q4

REPORT INFORMATION
  Report Type: 
  Country: None (occurrence: None)
  Receive Date: 20061129
  Receipt Date: 20061115
  Transmission Date: 20070319
  Serious: No
  Sender: FDA-Public Use
  Company Number: 36602

PATIENT
  Age: 92 Year
  Sex: Female

DRUGS (1)
  1. TRAVOPROST 0.004%  SOLUTION [Suspect]
     Dosage: OPHT
     Route: 047

REACTIONS (2)
  - ATRIOVENTRICULAR BLOCK THIRD DEGREE [None]
  - BUNDLE BRANCH BLOCK [None]
